FAERS Safety Report 10667211 (Version 1)
Quarter: 2014Q4

REPORT INFORMATION
  Report Type: Spontaneous
  Country: US (occurrence: US)
  Receive Date: 20141222
  Receipt Date: 20141222
  Transmission Date: 20150529
  Serious: Yes (Other)
  Sender: FDA-Public Use
  Company Number: GXBR2014US002620

PATIENT
  Age: 69 Year
  Sex: Female
  Weight: 81.18 kg

DRUGS (3)
  1. ENOXAPARIN SODIUM. [Suspect]
     Active Substance: ENOXAPARIN SODIUM
     Indication: THROMBOSIS PROPHYLAXIS
  2. BENAZEPRIL + HIDROCLOROTIAZIDA GENERIS [Concomitant]
     Indication: HYPERTENSION
     Dosage: 20MG BENAZEPRIL AND 12.5MG HCTZ , BID
     Route: 048
  3. ENOXAPARIN SODIUM. [Suspect]
     Active Substance: ENOXAPARIN SODIUM
     Indication: KNEE ARTHROPLASTY
     Dosage: 40 MG, QD
     Route: 058
     Dates: start: 20140713

REACTIONS (5)
  - Contusion [Recovered/Resolved]
  - Abdominal pain upper [Not Recovered/Not Resolved]
  - Skin exfoliation [Recovered/Resolved]
  - Wound [Recovered/Resolved]
  - Scar [Not Recovered/Not Resolved]

NARRATIVE: CASE EVENT DATE: 201407
